FAERS Safety Report 6892843-X (Version None)
Quarter: 2010Q3

REPORT INFORMATION
  Report Type: 
  Country: None (occurrence: None)
  Receive Date: 20100731
  Receipt Date: 20081008
  Transmission Date: 20110219
  Serious: No
  Sender: FDA-Public Use
  Company Number: US-PFIZER INC-2008085506

PATIENT
  Age: 24 Year
  Sex: Female

DRUGS (2)
  1. METRONIDAZOLE [Suspect]
     Indication: STAPHYLOCOCCAL INFECTION
     Route: 048
     Dates: start: 20080909
  2. ALDARA [Suspect]
     Indication: ANOGENITAL WARTS
     Dosage: 3 EVERY 1 WEEKS
     Route: 061
     Dates: start: 20080909

REACTIONS (1)
  - APPLICATION SITE DISCOLOURATION [None]
